FAERS Safety Report 6958628-0 (Version None)
Quarter: 2010Q3

REPORT INFORMATION
  Report Type: 
  Country: None (occurrence: None)
  Receive Date: 20100827
  Receipt Date: 20100827
  Transmission Date: 20110219
  Serious: No
  Sender: FDA-Public Use
  Company Number: None

PATIENT
  Age: 67 Year
  Sex: Female
  Weight: 56.6996 kg

DRUGS (2)
  1. TOBRAMYCIN [Suspect]
     Indication: CONJUNCTIVITIS
     Dosage: 2 DROPS 3X 3 TIMES A DAY DROPS IN EYES
     Route: 047
     Dates: start: 20100731
  2. GENTAMICIN [Suspect]
     Indication: CONJUNCTIVITIS
     Dosage: 2 DROPS 4 TIMES A DAY DROPS IN EYES
     Route: 047
     Dates: start: 20100801, end: 20100802

REACTIONS (7)
  - CONJUNCTIVITIS [None]
  - DISEASE RECURRENCE [None]
  - FEELING ABNORMAL [None]
  - MUSCULOSKELETAL PAIN [None]
  - PRURITUS [None]
  - RASH PRURITIC [None]
  - URTICARIA [None]
